FAERS Safety Report 8213606-9 (Version None)
Quarter: 2012Q1

REPORT INFORMATION
  Report Type: 
  Country: None (occurrence: None)
  Receive Date: 20120315
  Receipt Date: 20120306
  Transmission Date: 20120608
  Serious: Yes (Other)
  Sender: FDA-Public Use
  Company Number: CA-ASTRAZENECA-2012SE13609

PATIENT
  Age: 84 Year
  Sex: Female

DRUGS (10)
  1. NEXIUM [Suspect]
     Indication: GASTRIC ULCER
     Route: 048
     Dates: start: 20080101
  2. MULTI-VITAMIN [Concomitant]
  3. CRESTOR [Suspect]
     Indication: BLOOD CHOLESTEROL ABNORMAL
     Route: 048
     Dates: start: 19980101, end: 20120301
  4. ADALAT [Concomitant]
     Route: 048
  5. CALCIUM [Concomitant]
  6. LOVAZA [Concomitant]
  7. RAMIPRIL [Concomitant]
     Route: 048
  8. LEVOTHYROXINE SODIUM [Concomitant]
     Route: 048
  9. VITAMIN D [Concomitant]
  10. INSULIN [Concomitant]
     Route: 058

REACTIONS (1)
  - DERMATITIS PSORIASIFORM [None]
